FAERS Safety Report 5087180-2 (Version None)
Quarter: 2006Q3

REPORT INFORMATION
  Report Type: 
  Country: None (occurrence: None)
  Receive Date: 20060821
  Receipt Date: 20060807
  Transmission Date: 20061208
  Serious: Yes (Other)
  Sender: FDA-Public Use
  Company Number: 2006094348

PATIENT
  Age: 58 Year
  Sex: Male

DRUGS (2)
  1. VIAGRA [Suspect]
     Indication: ERECTILE DYSFUNCTION
     Dosage: 25 MG (25 MG), ORAL
     Route: 048
  2. CARDURA [Concomitant]

REACTIONS (4)
  - DIZZINESS [None]
  - HORMONE LEVEL ABNORMAL [None]
  - NASAL CONGESTION [None]
  - RHINITIS [None]
